FAERS Safety Report 21264353 (Version 1)
Quarter: 2022Q3

REPORT INFORMATION
  Report Type: Spontaneous
  Country: US (occurrence: US)
  Receive Date: 20220829
  Receipt Date: 20220829
  Transmission Date: 20221027
  Serious: Yes (Other)
  Sender: FDA-Public Use
  Company Number: US-RECORDATI-2022000679

PATIENT
  Age: 14 Month
  Sex: Female
  Weight: 9.6 kg

DRUGS (9)
  1. DACTINOMYCIN [Suspect]
     Active Substance: DACTINOMYCIN
     Indication: Embryonal rhabdomyosarcoma
     Dosage: PER DOSING TABLE, OVER 1-5 MINUTES ON DAY 1 OF CYCLES 1, 3, 5, 8, 10, 12 AND 14
     Route: 042
     Dates: start: 20180623, end: 20181206
  2. VINCRISTINE SULFATE [Suspect]
     Active Substance: VINCRISTINE SULFATE
     Indication: Embryonal rhabdomyosarcoma
     Dosage: PER DOSING TABLE, OVER 1 MINUTE
     Route: 042
     Dates: start: 20180623, end: 20181206
  3. VINCRISTINE SULFATE [Suspect]
     Active Substance: VINCRISTINE SULFATE
     Dosage: 0.65 UNK, UNK
     Route: 042
     Dates: start: 20181213
  4. TEMSIROLIMUS [Suspect]
     Active Substance: TEMSIROLIMUS
     Indication: Embryonal rhabdomyosarcoma
     Dosage: 0.5 MG/KG, OVER 30-60 MINUTES ON DAYS 1, 8, 15 OF CYCLES 1-4, 8, 9, 10, 11-14
     Route: 042
     Dates: start: 20180623, end: 20180905
  5. TEMSIROLIMUS [Suspect]
     Active Substance: TEMSIROLIMUS
     Dosage: 4.8 MILLIGRAM, UNK
     Route: 042
     Dates: start: 20181213
  6. CAMPTOSAR [Suspect]
     Active Substance: IRINOTECAN HYDROCHLORIDE
     Indication: Embryonal rhabdomyosarcoma
     Dosage: PER DOSING TABLE, OVER 90 MINUTES ON DAYS 1-5 OF CYCLES 2, 4, 6, 7, 9, 11 AND 13
     Route: 042
     Dates: start: 20180711, end: 20181118
  7. CYCLOPHOSPHAMIDE [Suspect]
     Active Substance: CYCLOPHOSPHAMIDE
     Indication: Embryonal rhabdomyosarcoma
     Dosage: PER DOSING TABLE, OVER 60 MINUTES ON DAY 1 OF CYCLES 1, 3, 5, 8, 10, 12 AND 14
     Route: 042
     Dates: start: 20180623, end: 20181206
  8. CYCLOPHOSPHAMIDE [Suspect]
     Active Substance: CYCLOPHOSPHAMIDE
     Dosage: 25 MILLIGRAM/SQ. METER, QD
     Route: 048
     Dates: start: 20180623
  9. VINORELBINE TARTRATE [Concomitant]
     Active Substance: VINORELBINE TARTRATE
     Indication: Product used for unknown indication
     Dosage: PER DOSING TABLE, ON DAYS 1, 8, AND 15 DURING MAINTENANCE CYCLE
     Route: 042
     Dates: start: 20180623

REACTIONS (2)
  - Alanine aminotransferase increased [Not Recovered/Not Resolved]
  - Eyelid ptosis [Recovered/Resolved]

NARRATIVE: CASE EVENT DATE: 20180905
